FAERS Safety Report 13677897 (Version 2)
Quarter: 2017Q2

REPORT INFORMATION
  Report Type: Spontaneous
  Country: US (occurrence: US)
  Receive Date: 20170622
  Receipt Date: 20170628
  Transmission Date: 20170830
  Serious: Yes (Life-Threatening, Hospitalization)
  Sender: FDA-Public Use
  Company Number: US-TORRENT-00003123

PATIENT
  Age: 61 Year
  Sex: Male

DRUGS (5)
  1. LORAZEPAM. [Concomitant]
     Active Substance: LORAZEPAM
  2. OLANZAPINE. [Suspect]
     Active Substance: OLANZAPINE
  3. DULOXETINE HYDROCHLORIDE. [Concomitant]
     Active Substance: DULOXETINE HYDROCHLORIDE
  4. HALOPERIDOL. [Suspect]
     Active Substance: HALOPERIDOL
  5. QUETIAPINE. [Suspect]
     Active Substance: QUETIAPINE

REACTIONS (3)
  - Drug withdrawal syndrome [Unknown]
  - Drug intolerance [Unknown]
  - Neuroleptic malignant syndrome [Recovered/Resolved]
